FAERS Safety Report 4867805-4 (Version None)
Quarter: 2005Q4

REPORT INFORMATION
  Report Type: 
  Country: None (occurrence: None)
  Receive Date: 20051227
  Receipt Date: 20051227
  Transmission Date: 20060501
  Serious: Yes (Other)
  Sender: FDA-Public Use
  Company Number: None

PATIENT
  Sex: Male
  Weight: 111.1313 kg

DRUGS (2)
  1. FENTANYL [Suspect]
     Indication: BACK PAIN
     Dosage: 100 MCG/ TD Q 72 HOURS
     Route: 062
     Dates: start: 20050225
  2. FENTANYL [Suspect]
     Indication: SPONDYLOLISTHESIS
     Dosage: 100 MCG/ TD Q 72 HOURS
     Route: 062
     Dates: start: 20050225

REACTIONS (4)
  - ABDOMINAL DISCOMFORT [None]
  - ASTHENIA [None]
  - HOT FLUSH [None]
  - PHARMACEUTICAL PRODUCT COMPLAINT [None]
